FAERS Safety Report 6220193-3 (Version None)
Quarter: 2009Q2

REPORT INFORMATION
  Report Type: 
  Country: None (occurrence: None)
  Receive Date: 20090605
  Receipt Date: 20090525
  Transmission Date: 20091009
  Serious: Yes (Death)
  Sender: FDA-Public Use
  Company Number: JP-2009-0490

PATIENT
  Age: 71 Year
  Sex: Male

DRUGS (1)
  1. NAVELBINE [Suspect]
     Indication: NON-SMALL CELL LUNG CANCER
     Dosage: 20 MG/M2 1 X WK IV
     Route: 042
     Dates: start: 20090204, end: 20090211

REACTIONS (4)
  - ILEUS PARALYTIC [None]
  - LEUKOPENIA [None]
  - PYREXIA [None]
  - SEPTIC SHOCK [None]
